FAERS Safety Report 8509050-7 (Version None)
Quarter: 2012Q3

REPORT INFORMATION
  Report Type: 
  Country: None (occurrence: None)
  Receive Date: 20120713
  Receipt Date: 20120628
  Transmission Date: 20120928
  Serious: Yes (Other)
  Sender: FDA-Public Use
  Company Number: -VALEANT-2012VX003035

PATIENT
  Sex: Female

DRUGS (3)
  1. TIMOLOL MALEATE [Suspect]
     Route: 047
  2. XALATAN [Suspect]
     Route: 065
  3. BETA BLOCKER (UNSPECIFIED) [Suspect]
     Route: 065

REACTIONS (8)
  - INFLUENZA LIKE ILLNESS [None]
  - FOREIGN BODY SENSATION IN EYES [None]
  - TUNNEL VISION [None]
  - VISION BLURRED [None]
  - INTRAOCULAR PRESSURE INCREASED [None]
  - EYELID OEDEMA [None]
  - BLINDNESS [None]
  - OCULAR HYPERAEMIA [None]
